FAERS Safety Report 16474608 (Version 1)
Quarter: 2019Q3

REPORT INFORMATION
  Report Type: Spontaneous
  Country: US (occurrence: US)
  Receive Date: 20190624
  Receipt Date: 20190624
  Transmission Date: 20191004
  Serious: Yes (Disabling)
  Sender: FDA-Public Use
  Company Number: None

PATIENT
  Age: 51 Year
  Sex: Female
  Weight: 75.6 kg

DRUGS (6)
  1. NORETHINDRONE. [Concomitant]
     Active Substance: NORETHINDRONE
  2. AIMOVIG [Suspect]
     Active Substance: ERENUMAB-AOOE
     Indication: MIGRAINE
     Dosage: ?          OTHER FREQUENCY:1X MONTH;?
     Route: 058
     Dates: start: 20180824, end: 20190416
  3. CETIRIZINE HYDROCHLORIDE. [Concomitant]
     Active Substance: CETIRIZINE HYDROCHLORIDE
  4. SYNTHROID [Concomitant]
     Active Substance: LEVOTHYROXINE SODIUM
  5. MIGRELIEF [Concomitant]
     Active Substance: DIETARY SUPPLEMENT
  6. MULTIVITAMIN [Concomitant]
     Active Substance: VITAMINS

REACTIONS (12)
  - Dry eye [None]
  - Arthralgia [None]
  - Gait disturbance [None]
  - Myalgia [None]
  - Astigmatism [None]
  - Skin lesion [None]
  - Muscular weakness [None]
  - Muscle spasms [None]
  - Drug ineffective [None]
  - Diplopia [None]
  - Bursitis [None]
  - Influenza like illness [None]

NARRATIVE: CASE EVENT DATE: 20180824
